FAERS Safety Report 8508223-7 (Version None)
Quarter: 2012Q2

REPORT INFORMATION
  Report Type: 
  Country: None (occurrence: None)
  Receive Date: 20120405
  Receipt Date: 20080922
  Transmission Date: 20120825
  Serious: Yes (Disabling, Other)
  Sender: FDA-Public Use
  Company Number: PHEH2008US02188

PATIENT
  Age: 51 Year
  Sex: Female
  Weight: 84.8 kg

DRUGS (2)
  1. OSCAL (CALCIUM CARBONATE) [Concomitant]
  2. RECLAST [Suspect]
     Indication: OSTEOPOROSIS
     Dosage: 5 MG. , INFUSION

REACTIONS (2)
  - INFUSION SITE PAIN [None]
  - MUSCULOSKELETAL PAIN [None]
